FAERS Safety Report 4748062-6 (Version None)
Quarter: 2005Q3

REPORT INFORMATION
  Report Type: 
  Country: None (occurrence: None)
  Receive Date: 20050818
  Receipt Date: 20040513
  Transmission Date: 20060218
  Serious: Yes (Death, Life-Threatening, Hospitalization)
  Sender: FDA-Public Use
  Company Number: B0332693A

PATIENT
  Age: 35 Year
  Sex: Female

DRUGS (3)
  1. COMBIVIR [Suspect]
     Indication: HIV INFECTION
     Dosage: 1TAB TWICE PER DAY
     Route: 048
     Dates: start: 20031119, end: 20040505
  2. TENOFOVIR [Suspect]
     Indication: HIV INFECTION
     Dosage: 300MG PER DAY
     Route: 048
     Dates: start: 20031119, end: 20040510
  3. FLUCONAZOLE [Concomitant]

REACTIONS (5)
  - DIARRHOEA [None]
  - HEPATIC FAILURE [None]
  - NEUTROPENIA [None]
  - PNEUMONIA [None]
  - SWELLING FACE [None]
